FAERS Safety Report 16784184 (Version 2)
Quarter: 2019Q3

REPORT INFORMATION
  Report Type: Spontaneous
  Country: GB (occurrence: GB)
  Receive Date: 20190909
  Receipt Date: 20190909
  Transmission Date: 20191005
  Serious: Yes (Death, Congenital Anomaly)
  Sender: FDA-Public Use
  Company Number: GB-SA-2019SA248601

PATIENT
  Sex: Female

DRUGS (1)
  1. CLEXANE [Suspect]
     Active Substance: ENOXAPARIN SODIUM
     Indication: MATERNAL EXPOSURE DURING PREGNANCY
     Dosage: UNK UNK, UNK
     Route: 064

REACTIONS (6)
  - Pulmonary oedema neonatal [Fatal]
  - Congenital anomaly [Fatal]
  - Foetal exposure during pregnancy [Unknown]
  - Aspiration pleural cavity [Fatal]
  - Malaise [Fatal]
  - Pulmonary hypoplasia [Fatal]
